FAERS Safety Report 7249191-8 (Version None)
Quarter: 2011Q1

REPORT INFORMATION
  Report Type: 
  Country: None (occurrence: None)
  Receive Date: 20110128
  Receipt Date: 20101116
  Transmission Date: 20110831
  Serious: Yes (Hospitalization, Other)
  Sender: FDA-Public Use
  Company Number: US-BAYER-201023026NA

PATIENT
  Sex: Female
  Weight: 86.168 kg

DRUGS (19)
  1. OCELLA [Suspect]
  2. ADVIL [Concomitant]
     Dosage: UNK
     Dates: start: 20050101
  3. EPINEPHRINE [Concomitant]
     Indication: MIGRAINE
     Dosage: UNK
     Dates: start: 20070101
  4. LEVONORGESTREL + ETHINYL ESTRADIOL [Concomitant]
  5. YASMIN [Suspect]
     Indication: CONTRACEPTION
     Dosage: UNK UNK, QD
     Route: 048
     Dates: start: 20050101, end: 20090101
  6. YAZ [Suspect]
  7. PROTONIX [Concomitant]
     Dosage: UNK
     Dates: start: 20081201
  8. UNCODEABLE ^UNCLASSIFIABLE^ [Concomitant]
     Indication: MIGRAINE
     Dosage: UNK
     Dates: start: 20070101
  9. METHSCOPOLAMINE BROMIDE [Concomitant]
     Dosage: UNK
     Dates: start: 20081228
  10. XANAX [Concomitant]
     Indication: MIGRAINE
     Dosage: UNK
     Dates: start: 20090301
  11. YASMIN [Suspect]
     Indication: PREMENSTRUAL SYNDROME
  12. PROMETHAZINE [Concomitant]
     Dosage: UNK
     Dates: start: 20090128
  13. AZITHROMYCIN [Concomitant]
     Dosage: UNK
     Dates: start: 20090212
  14. YASMIN [Suspect]
     Indication: ACNE
  15. UNCODEABLE ^UNCLASSIFIABLE^ [Concomitant]
     Dosage: UNK
     Dates: start: 20081228
  16. HYDROCODONE BITARTRATE AND ACETAMINOPHEN [Concomitant]
     Dosage: UNK
     Dates: start: 20090213
  17. NEXIUM [Concomitant]
     Dosage: UNK
  18. ANTIBIOTICS [Concomitant]
     Indication: SINUSITIS
     Dosage: UNK
     Dates: start: 20000101
  19. ALEVE-D SINUS + COLD [Concomitant]
     Dosage: UNK
     Dates: start: 20050101

REACTIONS (13)
  - GASTRITIS [None]
  - CHOLELITHIASIS [None]
  - IRRITABLE BOWEL SYNDROME [None]
  - GASTROOESOPHAGEAL REFLUX DISEASE [None]
  - HIATUS HERNIA [None]
  - DUODENAL ULCER [None]
  - NAUSEA [None]
  - ABDOMINAL PAIN [None]
  - DIARRHOEA [None]
  - HAEMATOCHEZIA [None]
  - CHOLECYSTITIS CHRONIC [None]
  - VOMITING [None]
  - DEHYDRATION [None]
